FAERS Safety Report 5231656-1 (Version None)
Quarter: 2007Q1

REPORT INFORMATION
  Report Type: 
  Country: None (occurrence: None)
  Receive Date: 20070202
  Receipt Date: 20070125
  Transmission Date: 20070707
  Serious: Yes (Hospitalization)
  Sender: FDA-Public Use
  Company Number: 2007SP001694

PATIENT
  Age: 67 Year
  Sex: Male

DRUGS (6)
  1. PEG-INTRON [Suspect]
     Indication: HEPATITIS C
     Dosage: 150 MCG; QW; SC
     Route: 058
     Dates: start: 20061014, end: 20061101
  2. RIBAVIRIN [Suspect]
     Indication: HEPATITIS C
     Dosage: 600 MG; BID; PO
     Route: 048
     Dates: start: 20061014, end: 20061101
  3. LITHIUM CARBONATE [Concomitant]
  4. SEROQUEL [Concomitant]
  5. VISTARIL [Concomitant]
  6. PREVACID [Concomitant]

REACTIONS (4)
  - CELLULITIS [None]
  - DIARRHOEA [None]
  - FULL BLOOD COUNT DECREASED [None]
  - THROMBOSIS [None]
